FAERS Safety Report 14454793 (Version 1)
Quarter: 2018Q1

REPORT INFORMATION
  Report Type: Spontaneous
  Country: US (occurrence: US)
  Receive Date: 20180129
  Receipt Date: 20180129
  Transmission Date: 20180509
  Serious: Yes (Hospitalization, Other)
  Sender: FDA-Public Use
  Company Number: US-DSJP-DSU-2017-140842

PATIENT

DRUGS (2)
  1. BENICAR [Suspect]
     Active Substance: OLMESARTAN MEDOXOMIL
     Dosage: 40 MG, QD
     Route: 048
  2. BENICAR [Suspect]
     Active Substance: OLMESARTAN MEDOXOMIL
     Indication: PRODUCT USED FOR UNKNOWN INDICATION
     Dosage: 20 MG, QD
     Route: 048
     Dates: start: 20070101

REACTIONS (7)
  - Sprue-like enteropathy [Recovering/Resolving]
  - Peptic ulcer [Unknown]
  - Impaired gastric emptying [Unknown]
  - Coeliac disease [Recovering/Resolving]
  - Gastrointestinal bacterial overgrowth [Unknown]
  - Gastrooesophageal reflux disease [Unknown]
  - Enteritis [Unknown]

NARRATIVE: CASE EVENT DATE: 20110613
